FAERS Safety Report 7266827-6 (Version None)
Quarter: 2011Q1

REPORT INFORMATION
  Report Type: 
  Country: None (occurrence: None)
  Receive Date: 20110201
  Receipt Date: 20110121
  Transmission Date: 20110831
  Serious: Yes (Other)
  Sender: FDA-Public Use
  Company Number: CA-JNJFOC-20110107028

PATIENT
  Sex: Female

DRUGS (9)
  1. AZATHIOPRINE [Concomitant]
  2. ADALAT [Concomitant]
  3. IRON [Concomitant]
  4. REMICADE [Suspect]
     Dosage: Q0-2-6
     Route: 042
  5. CALCIUM [Concomitant]
  6. LOMOTIL [Concomitant]
  7. VITAMIN D [Concomitant]
  8. REMICADE [Suspect]
     Indication: COLITIS ULCERATIVE
     Dosage: Q0-2-6
     Route: 042
  9. DOMPERIDONE [Concomitant]

REACTIONS (10)
  - BACK PAIN [None]
  - BLOOD PRESSURE INCREASED [None]
  - TREMOR [None]
  - ERYTHEMA [None]
  - NECK PAIN [None]
  - PARAESTHESIA [None]
  - RESPIRATORY RATE INCREASED [None]
  - INFUSION RELATED REACTION [None]
  - OEDEMA PERIPHERAL [None]
  - THROAT TIGHTNESS [None]
